FAERS Safety Report 6406252-0 (Version None)
Quarter: 2009Q4

REPORT INFORMATION
  Report Type: 
  Country: None (occurrence: None)
  Receive Date: 20091019
  Receipt Date: 20091006
  Transmission Date: 20100525
  Serious: Yes (Hospitalization)
  Sender: FDA-Public Use
  Company Number: PHHY2009DE43496

PATIENT
  Sex: Female

DRUGS (1)
  1. MERIGEST [Suspect]
     Dosage: UNK
     Route: 048
     Dates: start: 20090901

REACTIONS (3)
  - ARRHYTHMIA [None]
  - COUGH [None]
  - FLUID RETENTION [None]
